FAERS Safety Report 9209879 (Version 1)
Quarter: 2013Q2

REPORT INFORMATION
  Report Type: Spontaneous
  Country: US (occurrence: None)
  Receive Date: 20130403
  Receipt Date: 20130403
  Transmission Date: 20140414
  Serious: Yes (Hospitalization)
  Sender: FDA-Public Use
  Company Number: None

PATIENT
  Age: 5 Year
  Sex: Male

DRUGS (1)
  1. KINERET [Suspect]
     Indication: CHRONIC INFANTILE NEUROLOGICAL CUTANEOUS AND ARTICULAR SYNDROME

REACTIONS (7)
  - Dehydration [None]
  - Abdominal discomfort [None]
  - Constipation [None]
  - Sinusitis [None]
  - White blood cell count increased [None]
  - Neutrophil count increased [None]
  - C-reactive protein increased [None]
